FAERS Safety Report 5136488-0 (Version None)
Quarter: 2006Q4

REPORT INFORMATION
  Report Type: 
  Country: None (occurrence: None)
  Receive Date: 20061027
  Receipt Date: 20061013
  Transmission Date: 20070319
  Serious: Yes (Hospitalization)
  Sender: FDA-Public Use
  Company Number: US-JNJFOC-20060306718

PATIENT
  Sex: Female
  Weight: 88.45 kg

DRUGS (7)
  1. ORTHO EVRA [Suspect]
     Indication: MENSTRUAL DISORDER
  2. LEVAQUIN [Concomitant]
     Indication: PYREXIA
     Route: 048
  3. LEVAQUIN [Concomitant]
     Indication: PHARYNGITIS
     Route: 048
  4. ANTACID TAB [Concomitant]
     Indication: DRUG USE FOR UNKNOWN INDICATION
     Route: 048
  5. BIRTH CONTROL PILL [Concomitant]
     Indication: DRUG USE FOR UNKNOWN INDICATION
     Route: 048
  6. FLEXERIL [Concomitant]
     Indication: DRUG USE FOR UNKNOWN INDICATION
     Route: 048
  7. ADVIL [Concomitant]
     Indication: DRUG USE FOR UNKNOWN INDICATION
     Route: 048

REACTIONS (2)
  - PNEUMONIA [None]
  - PULMONARY EMBOLISM [None]
